FAERS Safety Report 18889426 (Version 2)
Quarter: 2021Q1

REPORT INFORMATION
  Report Type: Spontaneous
  Country: US (occurrence: US)
  Receive Date: 20210213
  Receipt Date: 20210325
  Transmission Date: 20210420
  Serious: No
  Sender: FDA-Public Use
  Company Number: US-UNITED THERAPEUTICS-UNT-2021-002459

PATIENT
  Sex: Female
  Weight: 46.26 kg

DRUGS (4)
  1. TYVASO [Suspect]
     Active Substance: TREPROSTINIL
     Indication: PULMONARY ARTERIAL HYPERTENSION
     Dosage: UNK
     Dates: start: 20191010
  2. SILDENAFIL CITRATE. [Concomitant]
     Active Substance: SILDENAFIL CITRATE
     Indication: PRODUCT USED FOR UNKNOWN INDICATION
     Dosage: UNK
     Route: 065
  3. OPSUMIT [Concomitant]
     Active Substance: MACITENTAN
     Indication: PRODUCT USED FOR UNKNOWN INDICATION
     Dosage: UNK
     Route: 065
  4. TYVASO [Suspect]
     Active Substance: TREPROSTINIL
     Dosage: 18?54 ?G, QID
     Dates: end: 20191031

REACTIONS (16)
  - Headache [Unknown]
  - Fall [Recovered/Resolved with Sequelae]
  - Burning sensation [Unknown]
  - Ocular icterus [Unknown]
  - Impaired quality of life [Unknown]
  - Vision blurred [Unknown]
  - Joint injury [Not Recovered/Not Resolved]
  - Abdominal pain [Unknown]
  - Loss of personal independence in daily activities [Unknown]
  - Flushing [Unknown]
  - Arthralgia [Unknown]
  - Nasal injury [Unknown]
  - Back pain [Unknown]
  - Dizziness [Unknown]
  - Muscular weakness [Unknown]
  - Arthritis [Unknown]

NARRATIVE: CASE EVENT DATE: 2020
